FAERS Safety Report 12410153 (Version 2)
Quarter: 2016Q2

REPORT INFORMATION
  Report Type: Other
  Country: GB (occurrence: GB)
  Receive Date: 20160527
  Receipt Date: 20160527
  Transmission Date: 20160815
  Serious: Yes (Hospitalization)
  Sender: FDA-Public Use
  Company Number: GB-CIPLA LTD.-2016GB05567

PATIENT

DRUGS (4)
  1. AMLODIPINE [Suspect]
     Active Substance: AMLODIPINE BESYLATE
     Indication: HYPERTENSION
     Dosage: 10 MG, BID
     Route: 065
     Dates: start: 20160327, end: 20160427
  2. ATENOLOL. [Concomitant]
     Active Substance: ATENOLOL
     Dosage: UNK
     Route: 065
  3. EPOETIN ALFA HEXEL [Concomitant]
     Dosage: UNK
     Route: 065
  4. ALFACALCIDOL [Concomitant]
     Active Substance: ALFACALCIDOL
     Dosage: UNK
     Route: 065

REACTIONS (8)
  - Pericardial effusion [Unknown]
  - Dyspnoea [Unknown]
  - Cardiac failure [Recovering/Resolving]
  - Hepatomegaly [Unknown]
  - Oedema peripheral [Unknown]
  - Cardiomegaly [Unknown]
  - Pleural effusion [Unknown]
  - Dilatation ventricular [Unknown]

NARRATIVE: CASE EVENT DATE: 20160427
